FAERS Safety Report 4530219-0 (Version None)
Quarter: 2004Q4

REPORT INFORMATION
  Report Type: 
  Country: None (occurrence: None)
  Receive Date: 20041215
  Receipt Date: 20041203
  Transmission Date: 20050328
  Serious: Yes (Other)
  Sender: FDA-Public Use
  Company Number: 2004104706

PATIENT
  Sex: Male

DRUGS (10)
  1. NEURONTIN [Suspect]
     Indication: ILL-DEFINED DISORDER
     Dosage: 900 MG (300 MG, 3 IN 1 D), ORAL
     Route: 048
  2. ATORVASTATIN (ATORVASTATIN) [Concomitant]
  3. ASPIRIN [Concomitant]
  4. DIAZEPAM [Concomitant]
  5. FLUOXETINE HYDROCHLORIDE (FLOXETINE HYDROCHLORIDE) [Concomitant]
  6. VALPROATE SODIUM [Concomitant]
  7. METOPROLOL SUCCINATE [Concomitant]
  8. TOLTERODINE TARTRATE [Concomitant]
  9. LAMOTRIGINE [Concomitant]
  10. ALL OTHER THERAPEUTIC PRODUCTS (ALL OTHER THERAPEUTIC PRODUCTS) [Concomitant]

REACTIONS (4)
  - BLOOD CREATININE INCREASED [None]
  - HYPOTHYROIDISM [None]
  - NEPHRECTOMY [None]
  - OFF LABEL USE [None]
